FAERS Safety Report 15369472 (Version 1)
Quarter: 2018Q3

REPORT INFORMATION
  Report Type: Spontaneous
  Country: US (occurrence: US)
  Receive Date: 20180911
  Receipt Date: 20180911
  Transmission Date: 20181010
  Serious: No
  Sender: FDA-Public Use
  Company Number: US-BRISTOL-MYERS SQUIBB COMPANY-BMS-2018-082873

PATIENT
  Sex: Female

DRUGS (1)
  1. APIXABAN [Suspect]
     Active Substance: APIXABAN
     Indication: SKIN ULCER
     Dosage: 5 MG, BID
     Route: 065

REACTIONS (4)
  - Product use in unapproved indication [Unknown]
  - Skin ulcer [Recovering/Resolving]
  - Pre-existing condition improved [Recovered/Resolved]
  - Therapeutic response unexpected [Unknown]
